FAERS Safety Report 19316125 (Version 1)
Quarter: 2021Q2

REPORT INFORMATION
  Report Type: Spontaneous
  Country: US (occurrence: US)
  Receive Date: 20210527
  Receipt Date: 20210527
  Transmission Date: 20210717
  Serious: No
  Sender: FDA-Public Use
  Company Number: US-BAYER-2021-145941

PATIENT

DRUGS (1)
  1. NEXAVAR [Suspect]
     Active Substance: SORAFENIB
     Indication: SARCOMA
     Dosage: UNK

REACTIONS (1)
  - Off label use [None]
